FAERS Safety Report 17365407 (Version 1)
Quarter: 2020Q1

REPORT INFORMATION
  Report Type: Spontaneous
  Country: FR (occurrence: FR)
  Receive Date: 20200204
  Receipt Date: 20200204
  Transmission Date: 20200409
  Serious: Yes (Other)
  Sender: FDA-Public Use
  Company Number: FR-BIOVITRUM-2020FR0473

PATIENT
  Age: 7 Month

DRUGS (1)
  1. ORFADIN [Suspect]
     Active Substance: NITISINONE
     Indication: TYROSINAEMIA
     Route: 064

REACTIONS (2)
  - Pyelocaliectasis [Unknown]
  - Maternal exposure during pregnancy [Recovered/Resolved]
